FAERS Safety Report 26056044 (Version 2)
Quarter: 2025Q4

REPORT INFORMATION
  Report Type: Spontaneous
  Country: US (occurrence: US)
  Receive Date: 20251118
  Receipt Date: 20251126
  Transmission Date: 20260118
  Serious: No
  Sender: ABBVIE
  Company Number: US-ABBVIE-6553737

PATIENT
  Age: 82 Year
  Sex: Male
  Weight: 71.667 kg

DRUGS (4)
  1. COMBIGAN [Suspect]
     Active Substance: BRIMONIDINE TARTRATE\TIMOLOL MALEATE
     Indication: Glaucoma
     Dosage: 1 DROP EACH EYE TWICE A DAY
     Route: 047
     Dates: start: 2022, end: 20251116
  2. DORZOLAMIDE HYDROCHLORIDE [Concomitant]
     Active Substance: DORZOLAMIDE HYDROCHLORIDE
     Indication: Glaucoma
     Dosage: RIGHT ONLY
  3. BROMFENAC [Concomitant]
     Active Substance: BROMFENAC
     Indication: Glaucoma
     Dosage: ON THE RIGHT EYE ONLY
  4. RHOPRESSA [Concomitant]
     Active Substance: NETARSUDIL MESYLATE
     Indication: Glaucoma
     Dosage: EACH EYE AT NIGHT

REACTIONS (3)
  - Lacrimation increased [Recovering/Resolving]
  - Eye pruritus [Recovering/Resolving]
  - Seasonal allergy [Unknown]

NARRATIVE: CASE EVENT DATE: 20250101
